FAERS Safety Report 18893186 (Version 1)
Quarter: 2021Q1

REPORT INFORMATION
  Report Type: Spontaneous
  Country: PE (occurrence: PE)
  Receive Date: 20210215
  Receipt Date: 20210215
  Transmission Date: 20210420
  Serious: Yes (Other)
  Sender: FDA-Public Use
  Company Number: PE-BAYER-2021-063666

PATIENT
  Age: 32 Year
  Sex: Female

DRUGS (1)
  1. JASMINE [Suspect]
     Active Substance: DROSPIRENONE\ETHINYL ESTRADIOL
     Dosage: UNK
     Route: 048
     Dates: start: 2014, end: 2018

REACTIONS (1)
  - Breast cancer metastatic [None]
